FAERS Safety Report 6597142-1 (Version None)
Quarter: 2010Q1

REPORT INFORMATION
  Report Type: 
  Country: None (occurrence: None)
  Receive Date: 20100223
  Receipt Date: 20100212
  Transmission Date: 20100710
  Serious: Yes (Death, Hospitalization)
  Sender: FDA-Public Use
  Company Number: JP-ROCHE-594489

PATIENT
  Sex: Male
  Weight: 48 kg

DRUGS (5)
  1. AVASTIN [Suspect]
     Indication: COLON CANCER
     Route: 041
     Dates: start: 20080307, end: 20080627
  2. ELPLAT [Concomitant]
     Route: 041
  3. 5-FU [Concomitant]
     Dosage: ROUTE: INTRAVENOUS BOLUS
     Route: 042
  4. 5-FU [Concomitant]
     Dosage: ROUTE: INTRAVENOUS DRIP.
     Route: 042
  5. CALCIUM LEVOFOLINATE [Concomitant]
     Route: 041

REACTIONS (2)
  - HAEMORRHAGE [None]
  - NEPHROTIC SYNDROME [None]
